FAERS Safety Report 15730023 (Version 1)
Quarter: 2018Q4

REPORT INFORMATION
  Report Type: Spontaneous
  Country: FR (occurrence: FR)
  Receive Date: 20181217
  Receipt Date: 20181217
  Transmission Date: 20190205
  Serious: Yes (Other)
  Sender: FDA-Public Use
  Company Number: FR-SA-2018SA342092

PATIENT
  Sex: Male

DRUGS (1)
  1. LOVENOX [Suspect]
     Active Substance: ENOXAPARIN SODIUM
     Indication: PRODUCT USED FOR UNKNOWN INDICATION
     Dosage: 1 DF, BID, 2 INJECTIONS PER DAY 1 IN THE MORNING AND 1 IN THE EVENING (WITH 12 HOURS DIFFERENCE BETW
     Route: 065
     Dates: start: 2016, end: 20170619

REACTIONS (5)
  - Headache [Recovered/Resolved]
  - Haemorrhage [Recovered/Resolved]
  - Arthralgia [Recovered/Resolved]
  - Faeces discoloured [Recovered/Resolved]
  - Amnesia [Recovered/Resolved]
